FAERS Safety Report 11743580 (Version 1)
Quarter: 2015Q4

REPORT INFORMATION
  Report Type: Spontaneous
  Country: US (occurrence: US)
  Receive Date: 20151116
  Receipt Date: 20151116
  Transmission Date: 20160304
  Serious: Yes (Other)
  Sender: FDA-Public Use
  Company Number: US-GLAXOSMITHKLINE-US2015162538

PATIENT
  Sex: Female

DRUGS (1)
  1. ADVAIR DISKUS [Suspect]
     Active Substance: FLUTICASONE PROPIONATE\SALMETEROL XINAFOATE
     Indication: MULTIPLE ALLERGIES
     Dosage: 1 DF, BID

REACTIONS (6)
  - Nasopharyngitis [Recovered/Resolved]
  - Off label use [Not Recovered/Not Resolved]
  - Macular degeneration [Not Recovered/Not Resolved]
  - Oropharyngeal pain [Recovered/Resolved]
  - Aphonia [Not Recovered/Not Resolved]
  - Condition aggravated [Not Recovered/Not Resolved]
